FAERS Safety Report 13042076 (Version 1)
Quarter: 2016Q4

REPORT INFORMATION
  Report Type: Spontaneous
  Country: US (occurrence: US)
  Receive Date: 20161219
  Receipt Date: 20161219
  Transmission Date: 20170207
  Serious: Yes (Death, Hospitalization)
  Sender: FDA-Public Use
  Company Number: US-PFIZER INC-2016478209

PATIENT
  Age: 49 Year
  Sex: Female
  Weight: 134 kg

DRUGS (6)
  1. DILAUDID [Concomitant]
     Active Substance: HYDROMORPHONE HYDROCHLORIDE
     Indication: PAIN
     Dosage: 2 MG, AS NEEDED (EVERY 4-6 HOURS)
     Route: 048
     Dates: start: 20161010
  2. ACID CONTROLLER [Concomitant]
     Active Substance: FAMOTIDINE
     Dosage: UNK
     Route: 048
  3. XALKORI [Suspect]
     Active Substance: CRIZOTINIB
     Indication: LUNG ADENOCARCINOMA STAGE IV
     Dosage: 250 MG, 2X/DAY
     Route: 048
     Dates: start: 20161004
  4. DURAGESIC [Concomitant]
     Active Substance: FENTANYL
     Dosage: 50 UG, CYCLIC (EVERY 72 HOURS)
     Route: 062
     Dates: start: 20161010
  5. KETOROLAC TROMETHAMINE. [Concomitant]
     Active Substance: KETOROLAC TROMETHAMINE
     Dosage: 10 MG, DAILY
     Route: 048
  6. DEXAMETHASONE. [Concomitant]
     Active Substance: DEXAMETHASONE
     Dosage: UNK
     Dates: start: 20161010

REACTIONS (2)
  - Pneumonia [Unknown]
  - Neoplasm progression [Fatal]
